FAERS Safety Report 7050309-0 (Version None)
Quarter: 2010Q4

REPORT INFORMATION
  Report Type: 
  Country: None (occurrence: None)
  Receive Date: 20101013
  Receipt Date: 20100928
  Transmission Date: 20110411
  Serious: Yes (Other)
  Sender: FDA-Public Use
  Company Number: FKO201000407

PATIENT
  Age: 55 Year
  Sex: Male

DRUGS (2)
  1. GEMCITABINE [Suspect]
     Indication: SQUAMOUS CELL CARCINOMA
     Dosage: (2500 MG)
  2. CISPLATIN [Suspect]
     Indication: SQUAMOUS CELL CARCINOMA
     Dosage: (150 MG)

REACTIONS (9)
  - BLADDER DYSFUNCTION [None]
  - CONSTIPATION [None]
  - FATIGUE [None]
  - LUNG SQUAMOUS CELL CARCINOMA STAGE UNSPECIFIED [None]
  - MALIGNANT NEOPLASM PROGRESSION [None]
  - MYELOPATHY [None]
  - PLEURAL EFFUSION [None]
  - RADIATION INJURY [None]
  - SENSORY LOSS [None]
